FAERS Safety Report 9453096 (Version 3)
Quarter: 2013Q3

REPORT INFORMATION
  Report Type: Spontaneous
  Country: US (occurrence: US)
  Receive Date: 20130812
  Receipt Date: 20130927
  Transmission Date: 20140515
  Serious: No
  Sender: FDA-Public Use
  Company Number: US-PFIZER INC-2013230952

PATIENT
  Age: 67 Year
  Sex: Female
  Weight: 56.2 kg

DRUGS (7)
  1. PREMPRO [Suspect]
     Indication: MENOPAUSAL SYMPTOMS
     Dosage: UNK, DAILY
     Route: 048
  2. PREMPRO [Suspect]
     Indication: HYPERHIDROSIS
  3. PREMPRO [Suspect]
     Indication: OSTEOPOROSIS
  4. LIPITOR [Suspect]
     Indication: THYROID DISORDER
     Dosage: UNK, DAILY
  5. ATORVASTATIN [Concomitant]
     Indication: BLOOD CHOLESTEROL INCREASED
     Dosage: 40 MG, DAILY
  6. VALIUM [Concomitant]
     Indication: SLEEP DISORDER
     Dosage: UNK
  7. TRAMADOL [Concomitant]
     Indication: ARTHRITIS
     Dosage: UNK, ALTERNATE DAY

REACTIONS (4)
  - Hyperhidrosis [Recovered/Resolved]
  - Irritability [Recovered/Resolved]
  - Agitation [Recovered/Resolved]
  - Malaise [Recovered/Resolved]
